FAERS Safety Report 14425494 (Version 1)
Quarter: 2018Q1

REPORT INFORMATION
  Report Type: Spontaneous
  Country: US (occurrence: US)
  Receive Date: 20180122
  Receipt Date: 20180122
  Transmission Date: 20180509
  Serious: Yes (Life-Threatening, Other)
  Sender: FDA-Public Use
  Company Number: None

PATIENT
  Sex: Female
  Weight: 73.35 kg

DRUGS (12)
  1. AROMASIN [Concomitant]
     Active Substance: EXEMESTANE
  2. COQ10 [Concomitant]
     Active Substance: UBIDECARENONE
  3. OMEGA 3 [Concomitant]
     Active Substance: OMEGA-3 FATTY ACIDS
  4. LOVASTATIN. [Concomitant]
     Active Substance: LOVASTATIN
  5. BIOTIN [Concomitant]
     Active Substance: BIOTIN
  6. SAW PALMETTO [Concomitant]
     Active Substance: HERBALS\SAW PALMETTO
  7. METOPROLOL. [Concomitant]
     Active Substance: METOPROLOL
  8. GRAPEFRUIT SEED EXTRACT [Concomitant]
     Active Substance: GRAPEFRUIT SEED EXTRACT
  9. HCTZ-TRIAMTERENE [Concomitant]
  10. OFLOXACIN DROPS 0.3%? [Suspect]
     Active Substance: OFLOXACIN
     Indication: DRUG THERAPY
     Dosage: ?          QUANTITY:1 DROP(S);?
     Route: 047
     Dates: start: 20171215, end: 20171222
  11. VITAMIN D3 [Concomitant]
     Active Substance: CHOLECALCIFEROL
  12. DYSBIEASE [Concomitant]

REACTIONS (1)
  - Asthma [None]

NARRATIVE: CASE EVENT DATE: 20171222
